FAERS Safety Report 7224906-3 (Version None)
Quarter: 2011Q1

REPORT INFORMATION
  Report Type: 
  Country: None (occurrence: None)
  Receive Date: 20110113
  Receipt Date: 20110106
  Transmission Date: 20110831
  Serious: Yes (Life-Threatening, Hospitalization, Disabling, Other)
  Sender: FDA-Public Use
  Company Number: BR-MILLENNIUM PHARMACEUTICALS, INC.-2010-04150

PATIENT

DRUGS (1)
  1. VELCADE [Suspect]
     Indication: MULTIPLE MYELOMA

REACTIONS (4)
  - AUTONOMIC NEUROPATHY [None]
  - NEUTROPENIA [None]
  - ARTHRITIS [None]
  - ORTHOSTATIC HYPOTENSION [None]
